FAERS Safety Report 12886111 (Version 1)
Quarter: 2016Q4

REPORT INFORMATION
  Report Type: Spontaneous
  Country: US (occurrence: US)
  Receive Date: 20161025
  Receipt Date: 20161025
  Transmission Date: 20170207
  Serious: Yes (Other)
  Sender: FDA-Public Use
  Company Number: None

PATIENT
  Age: 60 Year
  Sex: Male
  Weight: 69.75 kg

DRUGS (20)
  1. CIALIS [Concomitant]
     Active Substance: TADALAFIL
  2. PROBIOTIC [Concomitant]
     Active Substance: PROBIOTICS NOS
  3. ALLOPURINOL. [Concomitant]
     Active Substance: ALLOPURINOL
  4. TRAZODONE [Concomitant]
     Active Substance: TRAZODONE HYDROCHLORIDE
  5. NATURE MULTI ADULT + 50 MAGNESIUM [Concomitant]
  6. GLUCOSAMINE HCL [Concomitant]
     Active Substance: GLUCOSAMINE
  7. METHADONE [Concomitant]
     Active Substance: METHADONE HYDROCHLORIDE
  8. OXYBUTYNIN ER [Concomitant]
     Active Substance: OXYBUTYNIN
  9. KLONOPIN [Concomitant]
     Active Substance: CLONAZEPAM
  10. MILK THISTLE [Concomitant]
     Active Substance: MILK THISTLE
  11. CLONIDINE HCL 0.1 MG [Suspect]
     Active Substance: CLONIDINE HYDROCHLORIDE
     Indication: HYPERTENSION
     Dosage: ?          QUANTITY:1 TABLET(S);?
     Route: 048
     Dates: start: 20160727, end: 20160808
  12. GABAPENTIN. [Concomitant]
     Active Substance: GABAPENTIN
  13. ASPIRIN. [Concomitant]
     Active Substance: ASPIRIN
  14. VITAMINS [Concomitant]
     Active Substance: VITAMINS
  15. FISH OIL [Concomitant]
     Active Substance: FISH OIL
  16. SUPER B COMPLEX [Concomitant]
     Active Substance: CYANOCOBALAMIN\DEXPANTHENOL\NIACINAMIDE\PYRIDOXINE HYDROCHLORIDE\RIBOFLAVIN 5^-PHOSPHATE SODIUM\THIAMINE HYDROCHLORIDE\VITAMIN B COMPLEX
  17. POTASSIUM GLUCONATE [Concomitant]
     Active Substance: POTASSIUM GLUCONATE
  18. LOSARTAN POTASSIUM (COZAR) [Concomitant]
  19. LOW T TESTOSTERONE CYPIONATE [Concomitant]
  20. OXYCODONE [Concomitant]
     Active Substance: OXYCODONE

REACTIONS (7)
  - Fatigue [None]
  - Hypertension [None]
  - Muscle spasms [None]
  - Vision blurred [None]
  - Gastric disorder [None]
  - Heart rate decreased [None]
  - Headache [None]

NARRATIVE: CASE EVENT DATE: 20160728
